FAERS Safety Report 4460065-8 (Version None)
Quarter: 2004Q3

REPORT INFORMATION
  Report Type: 
  Country: None (occurrence: None)
  Receive Date: 20040928
  Receipt Date: 20031007
  Transmission Date: 20050211
  Serious: No
  Sender: FDA-Public Use
  Company Number: US-GLAXOSMITHKLINE-A0429246A

PATIENT
  Age: 58 Year
  Sex: Female
  Weight: 95.9 kg

DRUGS (4)
  1. SEREVENT [Suspect]
     Indication: ASTHMA
     Dosage: 1PUFF TWICE PER DAY
     Route: 055
     Dates: start: 20030811, end: 20031024
  2. DYAZIDE [Concomitant]
  3. CELEXA [Concomitant]
  4. ALBUTEROL [Concomitant]
     Route: 055

REACTIONS (3)
  - APHTHOUS STOMATITIS [None]
  - ORAL CANDIDIASIS [None]
  - STOMATITIS [None]
